FAERS Safety Report 13792733 (Version 2)
Quarter: 2019Q4

REPORT INFORMATION
  Report Type: Spontaneous
  Country: GB (occurrence: GB)
  Receive Date: 20170726
  Receipt Date: 20191227
  Transmission Date: 20200122
  Serious: Yes (Life-Threatening, Hospitalization)
  Sender: FDA-Public Use
  Company Number: GB-PFIZER INC-1558364

PATIENT
  Age: 91 Year

DRUGS (21)
  1. UNIPHYLLIN CONTINUS [Concomitant]
     Active Substance: THEOPHYLLINE ANHYDROUS
     Indication: PRODUCT USED FOR UNKNOWN INDICATION
     Dosage: 200 MG, FREQ: 2 DAY; INTERVAL: 1
     Route: 048
  2. BENZYLPENICILLIN [Suspect]
     Active Substance: PENICILLIN G
     Indication: PNEUMONIA
     Dosage: 1.2 G, PATIENT HAD 3 DOSES
     Dates: start: 20110218
  3. QUETIAPINE. [Concomitant]
     Active Substance: QUETIAPINE
     Indication: PRODUCT USED FOR UNKNOWN INDICATION
     Dosage: 25 MG, FREQ: 1 DAY; INTERVAL: 1
     Route: 048
  4. SALBUTAMOL [Concomitant]
     Active Substance: ALBUTEROL
     Indication: PRODUCT USED FOR UNKNOWN INDICATION
     Dosage: 5 MG, 5 MG/2.5 ML NEBULISER LIQUID, FREQ: 4 DAY; INTERVAL: 1
     Route: 050
  5. FLUCLOXACILLIN [Suspect]
     Active Substance: FLUCLOXACILLIN
     Indication: PRODUCT USED FOR UNKNOWN INDICATION
     Dosage: 250 MG, FREQ; 4 DAY; INTERVAL: 1
     Route: 048
     Dates: start: 20090710, end: 20090715
  6. LEVOFLOXACIN. [Suspect]
     Active Substance: LEVOFLOXACIN
     Indication: PNEUMONIA
     Dosage: 500 MG, 2X/DAY
     Dates: start: 20110218, end: 20110225
  7. PARACETAMOL [Concomitant]
     Active Substance: ACETAMINOPHEN
     Indication: PRODUCT USED FOR UNKNOWN INDICATION
     Dosage: 500MG- 1G QDS AS NEEDED, FREQ: 4 DAY; INTERVAL: 1
     Route: 048
  8. THIAMINE. [Concomitant]
     Active Substance: THIAMINE
     Indication: PRODUCT USED FOR UNKNOWN INDICATION
     Dosage: 100 MG, FREQ: 3 DAY; INTERVAL: 1
     Route: 048
  9. LEVOFLOXACIN. [Suspect]
     Active Substance: LEVOFLOXACIN
     Indication: ACUTE KIDNEY INJURY
     Dosage: 500 MG, FREQ: 2 DAY; INTERVAL: 1
     Route: 048
     Dates: start: 20110130, end: 20110206
  10. BUMETANIDE. [Concomitant]
     Active Substance: BUMETANIDE
     Indication: PRODUCT USED FOR UNKNOWN INDICATION
     Dosage: 2 MG, FREQ: 2 DAY; INTERVAL: 1
     Route: 048
  11. SENNA /00142201/ [Concomitant]
     Active Substance: SENNA LEAF
     Indication: PRODUCT USED FOR UNKNOWN INDICATION
     Dosage: 15 MG, FREQ: 1; INTERVAL: 1
     Route: 048
  12. BENZYLPENICILLIN [Suspect]
     Active Substance: PENICILLIN G
     Indication: PRODUCT USED FOR UNKNOWN INDICATION
     Dosage: 600 MG, PATIENT HAD FOUR DOSES
     Route: 041
     Dates: start: 20110130
  13. ATORVASTATIN [Concomitant]
     Active Substance: ATORVASTATIN
     Indication: PRODUCT USED FOR UNKNOWN INDICATION
     Dosage: 40 MG, FREQ: 1 DAY; INTERVAL: 1
     Route: 048
  14. VITAMIN B COMPOUND /00003501/ [Concomitant]
     Indication: PRODUCT USED FOR UNKNOWN INDICATION
     Dosage: 1 DF, FREQ: 1 DAY; INTERVAL: 1
     Route: 048
  15. CIPROFLOXACIN. [Suspect]
     Active Substance: CIPROFLOXACIN
     Indication: UROSEPSIS
     Dosage: 400 MG, HAD ONE DOSE, FREQ: 2 DAY ; INTERVAL: 1
     Route: 041
     Dates: start: 20110324
  16. ERTAPENEM. [Suspect]
     Active Substance: ERTAPENEM SODIUM
     Indication: URINARY TRACT INFECTION
     Dosage: 1 G, 1/7 THEN STOPPED , FREQ: 1 DAY; INTERVAL: 1
     Route: 042
     Dates: start: 20110330, end: 20110331
  17. IPRATROPIUM BROMIDE. [Concomitant]
     Active Substance: IPRATROPIUM BROMIDE
     Indication: PRODUCT USED FOR UNKNOWN INDICATION
     Dosage: 500MICROGRAMS/2ML NEBULISER LIQUID, FREQ: 4 DAY; INTERVAL: 1
     Route: 050
  18. CIPROFLOXACIN. [Suspect]
     Active Substance: CIPROFLOXACIN
     Indication: UROSEPSIS
     Dosage: 500 MG, HAD NINE DOSES , FREQ: 2 DAY; INTERVAL: 1
     Route: 048
     Dates: start: 20110325, end: 20110329
  19. DOXYCYCLINE. [Suspect]
     Active Substance: DOXYCYCLINE
     Indication: CHRONIC OBSTRUCTIVE PULMONARY DISEASE
     Dosage: 100 MG, FREQ: 2 DAY; INTERVAL: 1
     Route: 048
     Dates: start: 20100804
  20. ADCAL D3 [Concomitant]
     Active Substance: CALCIUM CARBONATE\CHOLECALCIFEROL
     Indication: PRODUCT USED FOR UNKNOWN INDICATION
     Dosage: FREQ: 2 DAY; INTERVAL: 1
     Route: 048
  21. ASPIRIN /00002701/ [Concomitant]
     Active Substance: ASPIRIN
     Indication: PRODUCT USED FOR UNKNOWN INDICATION
     Dosage: 75 MG, FREQ: 1 DAY; INTERVAL; 1
     Route: 048

REACTIONS (7)
  - Diarrhoea [Unknown]
  - Dysuria [Unknown]
  - Urosepsis [Unknown]
  - Hypotension [Unknown]
  - Clostridium difficile infection [Recovered/Resolved]
  - Confusional state [Unknown]
  - Pneumonia [Unknown]

NARRATIVE: CASE EVENT DATE: 20120407
